FAERS Safety Report 4459812-0 (Version None)
Quarter: 2004Q3

REPORT INFORMATION
  Report Type: 
  Country: None (occurrence: None)
  Receive Date: 20040928
  Receipt Date: 20031009
  Transmission Date: 20050211
  Serious: No
  Sender: FDA-Public Use
  Company Number: US-BRISTOL-MYERS SQUIBB COMPANY-12408035

PATIENT
  Age: 45 Year
  Sex: Female
  Weight: 52 kg

DRUGS (3)
  1. TRIMOX [Suspect]
     Indication: SINUSITIS
     Route: 048
     Dates: start: 20030908, end: 20030910
  2. TRIMOX [Suspect]
     Indication: NASOPHARYNGITIS
     Route: 048
     Dates: start: 20030908, end: 20030910
  3. NONE [Concomitant]

REACTIONS (2)
  - ABDOMINAL PAIN [None]
  - WEIGHT DECREASED [None]
